FAERS Safety Report 13740110 (Version 1)
Quarter: 2017Q3

REPORT INFORMATION
  Report Type: Spontaneous
  Country: FR (occurrence: FR)
  Receive Date: 20170711
  Receipt Date: 20170711
  Transmission Date: 20171127
  Serious: Yes (Hospitalization)
  Sender: FDA-Public Use
  Company Number: FR-ASTRAZENECA-2017SE69511

PATIENT
  Age: 20975 Day
  Sex: Female
  Weight: 80 kg

DRUGS (6)
  1. LEXOMIL [Concomitant]
     Active Substance: BROMAZEPAM
     Dosage: 0.5 TABLET AT NIGHT, IF INSOMNIA
  2. TEMERIT [Concomitant]
     Active Substance: NEBIVOLOL
  3. FASLODEX [Suspect]
     Active Substance: FULVESTRANT
     Indication: BREAST CANCER
     Dosage: 250 MG/ 5 ML, 500 MG MONTHLY
     Route: 030
     Dates: end: 20170606
  4. FASLODEX [Suspect]
     Active Substance: FULVESTRANT
     Indication: BREAST CANCER
     Dosage: 250 MG/ 5 ML, 500 MG MONTHLY
     Route: 051
     Dates: end: 20170606
  5. IBRANCE [Suspect]
     Active Substance: PALBOCICLIB
     Indication: BREAST CANCER
     Route: 048
     Dates: start: 201703, end: 20170606
  6. OMEPRAZOLE. [Concomitant]
     Active Substance: OMEPRAZOLE

REACTIONS (1)
  - Pancreatitis acute [Recovering/Resolving]

NARRATIVE: CASE EVENT DATE: 20170606
